FAERS Safety Report 5064983-1 (Version None)
Quarter: 2006Q3

REPORT INFORMATION
  Report Type: 
  Country: None (occurrence: None)
  Receive Date: 20060728
  Receipt Date: 20060718
  Transmission Date: 20061208
  Serious: Yes (Other)
  Sender: FDA-Public Use
  Company Number: GB-ABBOTT-06P-167-0338443-00

PATIENT
  Age: 26 Year
  Sex: Male
  Weight: 84 kg

DRUGS (1)
  1. ERYTHROMYCIN BASE [Suspect]
     Indication: ACNE
     Route: 048
     Dates: start: 20051201, end: 20060626

REACTIONS (2)
  - RHABDOMYOLYSIS [None]
  - SYNCOPE [None]
